FAERS Safety Report 22258749 (Version 2)
Quarter: 2023Q2

REPORT INFORMATION
  Report Type: Spontaneous
  Country: US (occurrence: None)
  Receive Date: 20230427
  Receipt Date: 20230430
  Transmission Date: 20230722
  Serious: Yes (Death)
  Sender: FDA-Public Use
  Company Number: US-ROCHE-3339655

PATIENT
  Age: 64 Year
  Sex: Female

DRUGS (7)
  1. ACTEMRA [Suspect]
     Active Substance: TOCILIZUMAB
     Indication: Rheumatoid arthritis
     Dosage: THE PATIENT WAS TAKING ACTEMRA 162MG SUBCUTANEOUSLY EVERY OTHER WEEK UNTIL HER DOSE WAS INCREASED TO
     Route: 058
     Dates: start: 20211228
  2. ACTEMRA [Suspect]
     Active Substance: TOCILIZUMAB
  3. METHOTREXATE [Concomitant]
     Active Substance: METHOTREXATE
     Dates: end: 202201
  4. HUMIRA [Concomitant]
     Active Substance: ADALIMUMAB
  5. OMEPRAZOLE [Concomitant]
     Active Substance: OMEPRAZOLE
     Indication: Gastrooesophageal reflux disease
  6. NAPROXEN [Concomitant]
     Active Substance: NAPROXEN
     Indication: Arthritis
  7. RIFAMPIN [Concomitant]
     Active Substance: RIFAMPIN

REACTIONS (1)
  - Death [Fatal]

NARRATIVE: CASE EVENT DATE: 20230426
